FAERS Safety Report 4968198-4 (Version None)
Quarter: 2006Q2

REPORT INFORMATION
  Report Type: 
  Country: None (occurrence: None)
  Receive Date: 20060410
  Receipt Date: 20060330
  Transmission Date: 20061013
  Serious: Yes (Disabling, Other)
  Sender: FDA-Public Use
  Company Number: FR-AVENTIS-200613528GDDC

PATIENT
  Sex: Female
  Weight: 40 kg

DRUGS (7)
  1. FLAGYL [Suspect]
     Dosage: DOSE: 500 MG
     Route: 048
     Dates: end: 20051219
  2. ANTIFUNGALS FOR SYSTEMIC USE [Suspect]
     Dosage: DOSE: 400 MG
     Route: 048
     Dates: start: 20051212, end: 20051223
  3. ANTIFUNGALS FOR SYSTEMIC USE [Suspect]
     Dosage: DOSE: 200 MG
     Route: 048
     Dates: start: 20051223, end: 20051226
  4. ANTIFUNGALS FOR SYSTEMIC USE [Suspect]
     Dosage: DOSE: 400 MG
     Route: 048
     Dates: start: 20060117
  5. NEORAL [Concomitant]
     Dosage: DOSE: 80 MG
     Route: 048
  6. ZELITREX [Concomitant]
     Dosage: DOSE: 1 TAB
     Route: 048
  7. OROKEN [Concomitant]
     Dosage: DOSE: 200 MG
     Route: 048

REACTIONS (1)
  - NEUROPATHY [None]
